FAERS Safety Report 11316401 (Version 1)
Quarter: 2015Q3

REPORT INFORMATION
  Report Type: Report from Study
  Country: US (occurrence: US)
  Receive Date: 20150728
  Receipt Date: 20150728
  Transmission Date: 20151125
  Serious: Yes (Hospitalization)
  Sender: FDA-Public Use
  Company Number: US-BAXALTA-2013BAX032218

PATIENT
  Age: 4 Year
  Sex: Female
  Weight: 14.2 kg

DRUGS (6)
  1. POLY-VI-SOL WITH IRON [Concomitant]
     Indication: PRODUCT USED FOR UNKNOWN INDICATION
     Dosage: .25ML1X A DAY
     Route: 048
  2. HUMAN PROTEIN C [Suspect]
     Active Substance: PROTEIN C
     Indication: PROTEIN C DEFICIENCY
     Dosage: 50 IU/KG, 3X A WEEK
     Route: 042
     Dates: start: 20110918
  3. HUMAN PROTEIN C [Suspect]
     Active Substance: PROTEIN C
     Dosage: 4000IU (INTERNATIONAL UNIT)3X A WEEK
     Route: 058
  4. METRONIDAZOLE. [Concomitant]
     Active Substance: METRONIDAZOLE
     Indication: CLOSTRIDIUM DIFFICILE INFECTION
     Dosage: 5.66ML4X A DAY
     Route: 048
  5. ZYRTEC [Concomitant]
     Active Substance: CETIRIZINE HYDROCHLORIDE
     Indication: PRODUCT USED FOR UNKNOWN INDICATION
     Dosage: 2.5ML1X A DAY
     Route: 048
  6. COUMADIN [Concomitant]
     Active Substance: WARFARIN SODIUM
     Indication: PRODUCT USED FOR UNKNOWN INDICATION
     Dosage: 2.5
     Route: 048

REACTIONS (4)
  - Culture urine positive [None]
  - Gastroenteritis [None]
  - Escherichia test positive [Recovered/Resolved]
  - International normalised ratio increased [None]

NARRATIVE: CASE EVENT DATE: 20130321
